FAERS Safety Report 14907021 (Version 1)
Quarter: 2018Q2

REPORT INFORMATION
  Report Type: Spontaneous
  Country: JP (occurrence: JP)
  Receive Date: 20180517
  Receipt Date: 20180517
  Transmission Date: 20180711
  Serious: Yes (Other)
  Sender: FDA-Public Use
  Company Number: JP-AMGEN-JPNSP2018066207

PATIENT
  Age: 92 Year
  Sex: Female

DRUGS (3)
  1. PRALIA [Suspect]
     Active Substance: DENOSUMAB
     Indication: OSTEOPOROSIS
     Dosage: 60 MG, ONCE EVERY 6 MO
     Route: 058
     Dates: start: 20170420, end: 20180426
  2. CRESTOR [Concomitant]
     Active Substance: ROSUVASTATIN CALCIUM
     Dosage: 2.5 MG, QD
     Route: 065
  3. EDIROL [Concomitant]
     Active Substance: ELDECALCITOL
     Dosage: 0.75 MUG, QD
     Route: 065

REACTIONS (1)
  - Arrhythmia [Recovered/Resolved]

NARRATIVE: CASE EVENT DATE: 20180426
